FAERS Safety Report 8571775-5 (Version None)
Quarter: 2012Q3

REPORT INFORMATION
  Report Type: 
  Country: None (occurrence: None)
  Receive Date: 20120806
  Receipt Date: 20120731
  Transmission Date: 20120928
  Serious: Yes (Other)
  Sender: FDA-Public Use
  Company Number: US-JNJFOC-20120800852

PATIENT
  Sex: Female
  Weight: 106.14 kg

DRUGS (2)
  1. LEVOTHYROXINE SODIUM [Concomitant]
     Indication: HYPOTHYROIDISM
     Dosage: 0.75 MG IN 24 HOURS
     Route: 048
     Dates: start: 20100101
  2. NUCYNTA [Suspect]
     Indication: PAIN
     Route: 048
     Dates: start: 20120701, end: 20120717

REACTIONS (7)
  - MALAISE [None]
  - VOMITING PROJECTILE [None]
  - DIZZINESS [None]
  - TREMOR [None]
  - FEELING COLD [None]
  - HOT FLUSH [None]
  - DISTURBANCE IN ATTENTION [None]
